FAERS Safety Report 5615694-2 (Version None)
Quarter: 2008Q1

REPORT INFORMATION
  Report Type: 
  Country: None (occurrence: None)
  Receive Date: 20080201
  Receipt Date: 20080123
  Transmission Date: 20080703
  Serious: Yes (Death, Hospitalization, Other)
  Sender: FDA-Public Use
  Company Number: 2007-00574

PATIENT
  Age: 66 Year
  Sex: Male

DRUGS (12)
  1. VELCADE [Suspect]
     Indication: MULTIPLE MYELOMA
     Dosage: 2.20 MG,
     Dates: start: 20070213, end: 20070306
  2. DEXAMETHASONE TAB [Concomitant]
  3. DIGOXIN [Concomitant]
  4. VOLTAREN [Concomitant]
  5. MAGNESIUM OXIDE (MAGNESIUM OXIDE) [Concomitant]
  6. CYTOTEC [Concomitant]
  7. PURSENNID (SENNA LEAF) [Concomitant]
  8. LANSOPRAZOLE [Concomitant]
  9. AMITRIPTYLINE HCL [Concomitant]
  10. DEPAS (ETIZOLAM) [Concomitant]
  11. CETILO [Concomitant]
  12. SUCRALFATE [Suspect]
     Dosage: 3.00 G, ORAL
     Route: 048

REACTIONS (12)
  - ANAEMIA [None]
  - ANOREXIA [None]
  - BLOOD ALKALINE PHOSPHATASE INCREASED [None]
  - BLOOD UREA INCREASED [None]
  - DISEASE PROGRESSION [None]
  - HYPOTENSION [None]
  - NAUSEA [None]
  - PLATELET COUNT DECREASED [None]
  - PNEUMONIA [None]
  - PNEUMONIA BACTERIAL [None]
  - PNEUMONIA FUNGAL [None]
  - WHITE BLOOD CELL COUNT DECREASED [None]
